FAERS Safety Report 22250694 (Version 1)
Quarter: 2023Q2

REPORT INFORMATION
  Report Type: Spontaneous
  Country: US (occurrence: None)
  Receive Date: 20230421
  Receipt Date: 20230421
  Transmission Date: 20230721
  Serious: Yes (Hospitalization)
  Sender: FDA-Public Use
  Company Number: None

PATIENT
  Age: 23 Year
  Sex: Female

DRUGS (1)
  1. MINERALS\VITAMINS [Suspect]
     Active Substance: MINERALS\VITAMINS
     Route: 041

REACTIONS (4)
  - Tremor [None]
  - Abdominal pain [None]
  - Infusion related reaction [None]
  - Sepsis [None]

NARRATIVE: CASE EVENT DATE: 20230419
